FAERS Safety Report 21239219 (Version 1)
Quarter: 2022Q3

REPORT INFORMATION
  Report Type: Spontaneous
  Country: NG (occurrence: None)
  Receive Date: 20220819
  Receipt Date: 20220819
  Transmission Date: 20221027
  Serious: Yes (Life-Threatening, Disabling, Other)
  Sender: FDA-Public Use
  Company Number: None

PATIENT
  Age: 35 Year
  Sex: Female
  Weight: 65 kg

DRUGS (5)
  1. ARIPIPRAZOLE [Suspect]
     Active Substance: ARIPIPRAZOLE
     Indication: Bipolar disorder
     Dosage: 2 TABLETS TWICE A DAY ORAL?
     Route: 048
  2. EPILIM [Suspect]
     Active Substance: VALPROATE SODIUM
  3. RISPERDAL [Suspect]
     Active Substance: RISPERIDONE
  4. FOLIC ACID [Concomitant]
     Active Substance: FOLIC ACID
  5. VITAMIN B COMPLEX [Concomitant]
     Active Substance: CYANOCOBALAMIN\DEXPANTHENOL\NIACINAMIDE\PYRIDOXINE HYDROCHLORIDE\RIBOFLAVIN 5^-PHOSPHATE SODIUM\THIA

REACTIONS (16)
  - Nausea [None]
  - Abdominal pain upper [None]
  - Feeling abnormal [None]
  - Abdominal distension [None]
  - Gastric disorder [None]
  - Blindness [None]
  - Glaucoma [None]
  - Swelling face [None]
  - Swelling [None]
  - Lip swelling [None]
  - Self esteem decreased [None]
  - Emotional distress [None]
  - Alopecia [None]
  - Alopecia [None]
  - Therapy non-responder [None]
  - Visual acuity reduced [None]

NARRATIVE: CASE EVENT DATE: 20220817
